FAERS Safety Report 10832092 (Version 2)
Quarter: 2015Q1

REPORT INFORMATION
  Report Type: Spontaneous
  Country: US (occurrence: US)
  Receive Date: 20150219
  Receipt Date: 20150219
  Transmission Date: 20150721
  Serious: Yes (Other)
  Sender: FDA-Public Use
  Company Number: US-ACTAVIS-2015-02397

PATIENT

DRUGS (3)
  1. METOCLOPRAMIDE HYDROCHLORIDE (WATSON LABORATORIES) [Suspect]
     Active Substance: METOCLOPRAMIDE HYDROCHLORIDE
     Indication: GASTROOESOPHAGEAL REFLUX DISEASE
     Dosage: UNK, UNKNOWN
     Route: 048
  2. REGLAN [Suspect]
     Active Substance: METOCLOPRAMIDE HYDROCHLORIDE
     Indication: ABDOMINAL DISTENSION
     Route: 065
  3. REGLAN [Suspect]
     Active Substance: METOCLOPRAMIDE HYDROCHLORIDE
     Indication: DYSPEPSIA

REACTIONS (5)
  - Tardive dyskinesia [Unknown]
  - Extrapyramidal disorder [Unknown]
  - Malaise [Unknown]
  - Intentional product use issue [Unknown]
  - Nervous system disorder [Unknown]
